FAERS Safety Report 21035490 (Version 2)
Quarter: 2022Q3

REPORT INFORMATION
  Report Type: Spontaneous
  Country: GB (occurrence: GB)
  Receive Date: 20220701
  Receipt Date: 20220704
  Transmission Date: 20221026
  Serious: Yes (Life-Threatening, Hospitalization, Other)
  Sender: FDA-Public Use
  Company Number: GB-NOVARTISPH-NVSC2021GB079971

PATIENT
  Age: 53 Year
  Sex: Male
  Weight: 85 kg

DRUGS (17)
  1. GABAPENTIN [Suspect]
     Active Substance: GABAPENTIN
     Indication: Nerve injury
     Dosage: 300 MG
     Route: 065
  2. GABAPENTIN [Suspect]
     Active Substance: GABAPENTIN
     Indication: Spinal instability
     Dosage: 300 MG, TID
     Route: 048
     Dates: start: 2017
  3. GABAPENTIN [Suspect]
     Active Substance: GABAPENTIN
     Dosage: 900 MG, QD
     Route: 048
     Dates: start: 20170210
  4. GABAPENTIN [Suspect]
     Active Substance: GABAPENTIN
     Dosage: 100 MG
     Route: 065
     Dates: end: 20220109
  5. GABAPENTIN [Suspect]
     Active Substance: GABAPENTIN
     Dosage: DOSE WAS REDUCED FROM 900MG TO 600MG
     Route: 065
     Dates: start: 20211101, end: 20211114
  6. GABAPENTIN [Suspect]
     Active Substance: GABAPENTIN
     Dosage: DOSE WAS REDUCED FROM 600MG TO 400MG
     Route: 065
     Dates: start: 20211114, end: 20211201
  7. GABAPENTIN [Suspect]
     Active Substance: GABAPENTIN
     Dosage: DOSE WAS REDUCED FROM 400MG TO 200MG
     Route: 065
     Dates: start: 20211201, end: 20211214
  8. GABAPENTIN [Suspect]
     Active Substance: GABAPENTIN
     Dosage: DOSE WAS REDUCED FROM 200MG TO 100MG
     Route: 065
     Dates: start: 20211214, end: 20220109
  9. GABAPENTIN [Suspect]
     Active Substance: GABAPENTIN
     Dosage: 1000 MG
     Route: 065
     Dates: start: 20220109
  10. DIAZEPAM [Concomitant]
     Active Substance: DIAZEPAM
     Indication: Back pain
     Dosage: 2 MG
     Route: 065
  11. DIAZEPAM [Concomitant]
     Active Substance: DIAZEPAM
     Dosage: UNK
     Route: 065
     Dates: start: 20110101
  12. LANSOPRAZOLE [Concomitant]
     Active Substance: LANSOPRAZOLE
     Indication: Product used for unknown indication
     Dosage: 15 MG
     Route: 065
  13. LANSOPRAZOLE [Concomitant]
     Active Substance: LANSOPRAZOLE
     Dosage: UNK
     Route: 065
     Dates: start: 20000101
  14. LISINOPRIL [Concomitant]
     Active Substance: LISINOPRIL
     Indication: Hypertension
     Dosage: 20 MG
     Route: 065
  15. LISINOPRIL [Concomitant]
     Active Substance: LISINOPRIL
     Dosage: UNK
     Route: 065
     Dates: start: 20110101
  16. THYROXINE [Concomitant]
     Active Substance: LEVOTHYROXINE
     Indication: Product used for unknown indication
     Dosage: 20 MG
     Route: 065
  17. LEVOTHYROXINE [Concomitant]
     Active Substance: LEVOTHYROXINE
     Indication: Thyroxine decreased
     Dosage: UNK
     Route: 065
     Dates: start: 20000101

REACTIONS (24)
  - Pain threshold decreased [Recovered/Resolved]
  - Mental disorder [Unknown]
  - Hot flush [Unknown]
  - Violence-related symptom [Unknown]
  - Deafness [Unknown]
  - Hyperacusis [Unknown]
  - Paranoia [Recovered/Resolved]
  - Feeling of body temperature change [Unknown]
  - Appendicitis [Unknown]
  - Photopsia [Unknown]
  - Tunnel vision [Unknown]
  - Panic attack [Unknown]
  - Restlessness [Unknown]
  - Muscle twitching [Unknown]
  - Suicidal ideation [Unknown]
  - Decreased appetite [Unknown]
  - Headache [Unknown]
  - Nausea [Unknown]
  - Depressed mood [Unknown]
  - Aggression [Not Recovered/Not Resolved]
  - Anxiety [Not Recovered/Not Resolved]
  - Palpitations [Unknown]
  - Depression [Unknown]
  - Pruritus [Unknown]

NARRATIVE: CASE EVENT DATE: 20210318
